FAERS Safety Report 9717471 (Version 1)
Quarter: 2013Q4

REPORT INFORMATION
  Report Type: Spontaneous
  Country: US (occurrence: US)
  Receive Date: 20131127
  Receipt Date: 20131127
  Transmission Date: 20140711
  Serious: No
  Sender: FDA-Public Use
  Company Number: US-GILEAD-2009-0019703

PATIENT
  Sex: Female
  Weight: 72.12 kg

DRUGS (10)
  1. LETAIRIS [Suspect]
     Indication: PULMONARY ARTERIAL HYPERTENSION
     Route: 048
  2. REVATIO [Concomitant]
     Route: 048
  3. DIGOXIN [Concomitant]
     Route: 048
  4. COUMADIN [Concomitant]
     Route: 048
  5. OXYGEN [Concomitant]
  6. DEMADEX [Concomitant]
     Route: 048
  7. IPRATROPIUM BROMIDE [Concomitant]
  8. ALBUTEROL [Concomitant]
     Route: 055
  9. SYMBICORT [Concomitant]
     Route: 048
  10. ZOLOFT [Concomitant]
     Route: 048

REACTIONS (1)
  - Local swelling [Unknown]
